FAERS Safety Report 10587578 (Version 1)
Quarter: 2014Q4

REPORT INFORMATION
  Report Type: Spontaneous
  Country: RU (occurrence: RU)
  Receive Date: 20141117
  Receipt Date: 20141117
  Transmission Date: 20150529
  Serious: Yes (Life-Threatening)
  Sender: FDA-Public Use
  Company Number: RU-BAYER-2014-168442

PATIENT
  Age: 64 Year
  Sex: Female

DRUGS (1)
  1. ULTRAVIST [Suspect]
     Active Substance: IOPROMIDE
     Dosage: UNK, ONCE
     Route: 042

REACTIONS (5)
  - Chills [Recovered/Resolved]
  - Cardiac disorder [Recovered/Resolved]
  - Erythema [Recovered/Resolved]
  - Blood pressure increased [Recovered/Resolved]
  - Heart rate irregular [Recovered/Resolved]
